FAERS Safety Report 6210637-5 (Version None)
Quarter: 2009Q2

REPORT INFORMATION
  Report Type: 
  Country: None (occurrence: None)
  Receive Date: 20090529
  Receipt Date: 20090529
  Transmission Date: 20091009
  Serious: Yes (Other)
  Sender: FDA-Public Use
  Company Number: None

PATIENT
  Age: 55 Year
  Sex: Male
  Weight: 108.8633 kg

DRUGS (1)
  1. PATANASE [Suspect]
     Indication: MULTIPLE ALLERGIES
     Dosage: 2 SPRAYS IN A NOSTRIL TWICE DAILY NASAL
     Route: 045
     Dates: start: 20090511, end: 20090526

REACTIONS (4)
  - DIZZINESS [None]
  - IMPAIRED WORK ABILITY [None]
  - PROSTATE INFECTION [None]
  - URINARY TRACT INFECTION [None]
